FAERS Safety Report 22625950 (Version 1)
Quarter: 2023Q2

REPORT INFORMATION
  Report Type: Spontaneous
  Country: DE (occurrence: DE)
  Receive Date: 20230621
  Receipt Date: 20230621
  Transmission Date: 20230721
  Serious: Yes (Other)
  Sender: FDA-Public Use
  Company Number: DE-Laboratoires BESINS-INTERNATIONAL-2023-25072

PATIENT
  Sex: Female

DRUGS (1)
  1. ETHINYL ESTRADIOL\LEVONORGESTREL [Suspect]
     Active Substance: ETHINYL ESTRADIOL\LEVONORGESTREL
     Indication: Contraception
     Dosage: 0.1 MG LEVO AND 0.02 MG ETHINYLESTRADIOL
     Route: 065

REACTIONS (3)
  - Ovarian vein thrombosis [Recovered/Resolved]
  - Haematuria [Recovered/Resolved]
  - Abdominal pain lower [Recovered/Resolved]
